FAERS Safety Report 4771393-0 (Version None)
Quarter: 2005Q3

REPORT INFORMATION
  Report Type: 
  Country: None (occurrence: None)
  Receive Date: 20050914
  Receipt Date: 20050830
  Transmission Date: 20060218
  Serious: Yes (Hospitalization)
  Sender: FDA-Public Use
  Company Number: 216336

PATIENT
  Age: 48 Year
  Sex: Male
  Weight: 66.9 kg

DRUGS (9)
  1. AVASTIN [Suspect]
     Indication: GLIOBLASTOMA MULTIFORME
     Dosage: 10 MG/KG, Q2W,
     Dates: start: 20050712
  2. IRINOTECAN HCL [Suspect]
     Indication: GLIOBLASTOMA MULTIFORME
     Dosage: 340 MG/M2,
     Dates: start: 20050712
  3. DILANTIN [Concomitant]
  4. DECADRON [Concomitant]
  5. ATIVAN [Concomitant]
  6. PROTONIX [Concomitant]
  7. SEPTRA [Concomitant]
  8. HYDROCHLOROTHIAZIDE [Concomitant]
  9. METFORMIN HCL [Concomitant]

REACTIONS (9)
  - COMPUTERISED TOMOGRAM ABNORMAL [None]
  - DEPRESSED LEVEL OF CONSCIOUSNESS [None]
  - HYPONATRAEMIA [None]
  - MIOSIS [None]
  - NAUSEA [None]
  - PETECHIAE [None]
  - SOMNOLENCE [None]
  - URINARY TRACT INFECTION [None]
  - VOMITING [None]
